FAERS Safety Report 7601684-7 (Version None)
Quarter: 2011Q3

REPORT INFORMATION
  Report Type: 
  Country: None (occurrence: None)
  Receive Date: 20110711
  Receipt Date: 20110630
  Transmission Date: 20111222
  Serious: Yes (Disabling, Other)
  Sender: FDA-Public Use
  Company Number: GB-B.I. PHARMACEUTICALS,INC./RIDGEFIELD-2011-UK-00696UK

PATIENT
  Sex: Male

DRUGS (6)
  1. CO-CARELDOPA [Concomitant]
     Dosage: 250 MG
     Route: 048
  2. DIAZEPAM [Concomitant]
  3. FENTANYL [Concomitant]
  4. TRAMADOL HCL [Concomitant]
  5. PRAMIPEXOLE DIHYDROCHLORIDE [Suspect]
     Indication: PARKINSON'S DISEASE
     Dosage: 750 MCG
     Route: 048
  6. RASAGILINE [Concomitant]
     Dosage: 1 G
     Route: 048

REACTIONS (2)
  - DELUSION [None]
  - DISINHIBITION [None]
